FAERS Safety Report 25122956 (Version 2)
Quarter: 2025Q3

REPORT INFORMATION
  Report Type: Spontaneous
  Country: CN (occurrence: CN)
  Receive Date: 20250326
  Receipt Date: 20250803
  Transmission Date: 20251020
  Serious: Yes (Other)
  Sender: ALEXION PHARMACEUTICALS
  Company Number: CN-ASTRAZENECA-202503CHN016703CN

PATIENT
  Age: 68 Year
  Sex: Female
  Weight: 60 kg

DRUGS (2)
  1. OLAPARIB [Suspect]
     Active Substance: OLAPARIB
     Indication: Malignant peritoneal neoplasm
     Dosage: 0.3 GRAM, BID
     Dates: start: 20240701, end: 20250319
  2. BEVACIZUMAB [Concomitant]
     Active Substance: BEVACIZUMAB
     Indication: Malignant peritoneal neoplasm
     Dosage: 400 MILLIGRAM, QD
     Dates: start: 20250215, end: 20250215

REACTIONS (1)
  - Myelosuppression [Recovering/Resolving]

NARRATIVE: CASE EVENT DATE: 20250308
